FAERS Safety Report 6703995-6 (Version None)
Quarter: 2010Q2

REPORT INFORMATION
  Report Type: 
  Country: None (occurrence: None)
  Receive Date: 20100430
  Receipt Date: 20100421
  Transmission Date: 20101027
  Serious: Yes (Hospitalization)
  Sender: FDA-Public Use
  Company Number: IT-ROCHE-699961

PATIENT
  Sex: Female

DRUGS (1)
  1. NAPROSYN [Suspect]
     Dosage: NAPROSYN 500MG GASTRO-RESISTANT TABLET
     Route: 048
     Dates: start: 20100315, end: 20100415

REACTIONS (2)
  - ANAEMIA [None]
  - GASTRIC ULCER HAEMORRHAGE [None]
